FAERS Safety Report 9257378 (Version 3)
Quarter: 2013Q3

REPORT INFORMATION
  Report Type: Spontaneous
  Country: US (occurrence: None)
  Receive Date: 20130423
  Receipt Date: 20130910
  Transmission Date: 20140515
  Serious: Yes (Other)
  Sender: FDA-Public Use
  Company Number: ACO_35564_2013

PATIENT
  Age: 59 Year
  Sex: Female
  Weight: 73.5 kg

DRUGS (10)
  1. AMPYRA (DALFAMPRIDINE) TABLET, 10 MG [Suspect]
     Indication: MULTIPLE SCLEROSIS
     Route: 048
     Dates: start: 2011, end: 2013
  2. BACLOFEN [Suspect]
     Indication: PRODUCT USED FOR UNKNOWN INDICATION
     Dates: end: 201303
  3. TYSABRI (NATALIZUMAB) [Concomitant]
  4. METOPROLOL (METOPROLOL TARTRATE) [Concomitant]
  5. GABAPENTIN [Concomitant]
  6. VITAMIN B12 (CYANOCOBALAMIN) [Concomitant]
  7. SERTRALINE HCL [Concomitant]
  8. PLAQUENIL (HYDROXYCHLOROQUINE SULFATE) [Concomitant]
  9. ALL OTHER THERAPEUTIC PRODUCTS [Concomitant]
  10. ANTIHYPERTENSIVES [Concomitant]

REACTIONS (10)
  - Toxicity to various agents [None]
  - Muscular weakness [None]
  - Asthenia [None]
  - Diarrhoea [None]
  - Mucous stools [None]
  - Constipation [None]
  - Drug effect decreased [None]
  - Product quality issue [None]
  - Asthenia [None]
  - Fatigue [None]
